FAERS Safety Report 24875105 (Version 8)
Quarter: 2025Q3

REPORT INFORMATION
  Report Type: Spontaneous
  Country: JP (occurrence: JP)
  Receive Date: 20250122
  Receipt Date: 20250904
  Transmission Date: 20251020
  Serious: Yes (Hospitalization, Other)
  Sender: PFIZER
  Company Number: JP-ONO-2025JP000748

PATIENT
  Age: 69 Year
  Sex: Male

DRUGS (2)
  1. BRAFTOVI [Suspect]
     Active Substance: ENCORAFENIB
     Indication: Thyroid cancer metastatic
     Route: 048
  2. MEKTOVI [Suspect]
     Active Substance: BINIMETINIB
     Indication: Thyroid cancer metastatic
     Route: 048

REACTIONS (8)
  - Cardiac valve disease [Not Recovered/Not Resolved]
  - Cardiac failure congestive [Recovering/Resolving]
  - Serous retinal detachment [Recovered/Resolved]
  - Mitral valve incompetence [Unknown]
  - Cardiac ventricular thrombosis [Unknown]
  - Malaise [Not Recovered/Not Resolved]
  - Dyspnoea [Unknown]
  - Fatigue [Unknown]
